FAERS Safety Report 6611272-7 (Version None)
Quarter: 2010Q1

REPORT INFORMATION
  Report Type: 
  Country: None (occurrence: None)
  Receive Date: 20100303
  Receipt Date: 20100216
  Transmission Date: 20100710
  Serious: Yes (Death, Other)
  Sender: FDA-Public Use
  Company Number: JP-BAYER-200913418BYL

PATIENT
  Age: 33 Year
  Sex: Male

DRUGS (5)
  1. FLUDARA [Suspect]
     Indication: STEM CELL TRANSPLANT
     Route: 042
     Dates: start: 20090818, end: 20090822
  2. SANDIMMUNE [Concomitant]
     Dosage: TOTAL DAILY DOSE: 160 MG
     Route: 041
     Dates: start: 20090823, end: 20090902
  3. GRAN [Concomitant]
     Dosage: TOTAL DAILY DOSE: 450 ?G
     Route: 041
     Dates: start: 20090825, end: 20090902
  4. TARGOCID [Concomitant]
     Dosage: TOTAL DAILY DOSE: 400 MG
     Route: 041
     Dates: start: 20090827, end: 20090902
  5. BROACT [Concomitant]
     Dosage: TOTAL DAILY DOSE: 4 G  UNIT DOSE: 1 G
     Route: 041
     Dates: start: 20090827, end: 20090902

REACTIONS (3)
  - BRAIN HERNIATION [None]
  - HYPERAMMONAEMIA [None]
  - HYPERAMMONAEMIC ENCEPHALOPATHY [None]
